FAERS Safety Report 11587275 (Version 1)
Quarter: 2015Q3

REPORT INFORMATION
  Report Type: Spontaneous
  Country: US (occurrence: US)
  Receive Date: 20150916
  Receipt Date: 20150916
  Transmission Date: 20151125
  Serious: No
  Sender: FDA-Public Use
  Company Number: US-ELI_LILLY_AND_COMPANY-US200802000945

PATIENT
  Age: 69 Year
  Sex: Female

DRUGS (5)
  1. MELOXICAM. [Concomitant]
     Active Substance: MELOXICAM
  2. HYDROCODONE [Concomitant]
     Active Substance: HYDROCODONE
  3. CALCIUM [Concomitant]
     Active Substance: CALCIUM
  4. PREDNISONE. [Concomitant]
     Active Substance: PREDNISONE
  5. FORTEO [Suspect]
     Active Substance: TERIPARATIDE
     Indication: OSTEOPOROSIS

REACTIONS (4)
  - Dry mouth [Not Recovered/Not Resolved]
  - Dental caries [Not Recovered/Not Resolved]
  - Tooth disorder [Not Recovered/Not Resolved]
  - Bone disorder [Not Recovered/Not Resolved]

NARRATIVE: CASE EVENT DATE: 20060204
